FAERS Safety Report 17280366 (Version 1)
Quarter: 2020Q1

REPORT INFORMATION
  Report Type: Spontaneous
  Country: US (occurrence: US)
  Receive Date: 20200117
  Receipt Date: 20200117
  Transmission Date: 20200409
  Serious: No
  Sender: FDA-Public Use
  Company Number: US-UCBSA-2019003245

PATIENT
  Age: 71 Year
  Sex: Female

DRUGS (3)
  1. LEVETIRACETAM. [Suspect]
     Active Substance: LEVETIRACETAM
     Indication: OFF LABEL USE
     Dosage: UNK
  2. LEVETIRACETAM. [Suspect]
     Active Substance: LEVETIRACETAM
     Indication: STATUS EPILEPTICUS
     Dosage: 2 G, LOADING DOSE
     Route: 042
  3. HEMIN [Concomitant]
     Active Substance: HEMIN
     Indication: PORPHYRIA ACUTE
     Dosage: UNK

REACTIONS (1)
  - No adverse event [Unknown]
